FAERS Safety Report 6617967-3 (Version None)
Quarter: 2010Q1

REPORT INFORMATION
  Report Type: 
  Country: None (occurrence: None)
  Receive Date: 20100308
  Receipt Date: 20100224
  Transmission Date: 20100710
  Serious: Yes (Hospitalization, Other)
  Sender: FDA-Public Use
  Company Number: PHHY2009BR08342

PATIENT
  Age: 89 Year
  Sex: Female
  Weight: 61 kg

DRUGS (13)
  1. EXELON [Suspect]
     Indication: PARKINSON'S DISEASE
     Dosage: 3 MG, BID
     Route: 048
     Dates: start: 20080901
  2. EXELON [Suspect]
     Dosage: 4.5 MG, BID
     Route: 048
     Dates: end: 20090201
  3. EXELON [Suspect]
     Dosage: 6 MG, BID
     Route: 048
  4. EXELON [Suspect]
     Dosage: 9MG/5CM2, 4.6 MG, QD
     Route: 062
  5. EXELON [Suspect]
     Dosage: 6 MG, BID
     Route: 048
  6. PURAN T4 [Concomitant]
     Dosage: 25 MCG/DAY
  7. OMEPRAZOLE [Concomitant]
     Dosage: 20 MG/DAY
  8. PROLOPA [Concomitant]
     Dosage: 125 MG, QID
     Route: 048
  9. DIGOXIN [Concomitant]
     Dosage: 0.25 MG, QW3
  10. DORMONID [Concomitant]
     Indication: SLEEP DISORDER
     Dosage: 15 MG, QD, AT NIGHT
  11. LASIX [Concomitant]
     Dosage: 20 MG, QW3
  12. ANTIBIOTICS [Concomitant]
     Indication: PYREXIA
     Dosage: UNK
  13. RISPERIDONE [Concomitant]
     Indication: PARKINSON'S DISEASE
     Dosage: 1 MG, QD, AT NIGHT
     Route: 048

REACTIONS (17)
  - ABASIA [None]
  - AGGRESSION [None]
  - AGITATION [None]
  - CONFUSIONAL STATE [None]
  - DECREASED APPETITE [None]
  - DRUG INEFFECTIVE [None]
  - DYSARTHRIA [None]
  - DYSPHAGIA [None]
  - FALL [None]
  - HAEMATEMESIS [None]
  - MOVEMENT DISORDER [None]
  - NERVOUSNESS [None]
  - OEDEMA PERIPHERAL [None]
  - PERIORBITAL HAEMATOMA [None]
  - SCREAMING [None]
  - TREMOR [None]
  - WEIGHT DECREASED [None]
